FAERS Safety Report 5094642-0 (Version None)
Quarter: 2006Q3

REPORT INFORMATION
  Report Type: 
  Country: None (occurrence: None)
  Receive Date: 20060831
  Receipt Date: 20060822
  Transmission Date: 20061208
  Serious: Yes (Death)
  Sender: FDA-Public Use
  Company Number: GB-MERCK-0608GBR00120

PATIENT
  Age: 72 Year
  Sex: Female

DRUGS (4)
  1. INDOCIN [Suspect]
     Indication: OSTEOARTHRITIS
     Route: 054
     Dates: end: 19931118
  2. CAPTOPRIL [Concomitant]
     Indication: HYPERTENSION
     Route: 065
  3. NADOLOL [Concomitant]
     Indication: HYPERTENSION
     Route: 065
  4. NIFEDIPINE [Concomitant]
     Indication: HYPERTENSION
     Route: 065

REACTIONS (2)
  - LARGE INTESTINE PERFORATION [None]
  - PERITONITIS [None]
